FAERS Safety Report 15802641 (Version 1)
Quarter: 2019Q1

REPORT INFORMATION
  Report Type: Report from Study
  Country: DE (occurrence: DE)
  Receive Date: 20190109
  Receipt Date: 20190109
  Transmission Date: 20190417
  Serious: Yes (Hospitalization)
  Sender: FDA-Public Use
  Company Number: DE-TEVA-2019-DE-996508

PATIENT
  Age: 45 Year
  Sex: Female
  Weight: 85 kg

DRUGS (7)
  1. ANAFRANIL [Concomitant]
     Active Substance: CLOMIPRAMINE HYDROCHLORIDE
     Indication: DEPRESSION
     Route: 048
     Dates: start: 20160209, end: 20160213
  2. CAPECITABINE. [Suspect]
     Active Substance: CAPECITABINE
     Indication: BREAST CANCER
     Dosage: D1 TO D14 OF EACH 3 WEEK CYCLE
     Route: 048
     Dates: start: 20150806, end: 20150806
  3. MCP [Concomitant]
     Active Substance: METOCLOPRAMIDE HYDROCHLORIDE
     Indication: NAUSEA
     Route: 048
     Dates: start: 20150803
  4. BEVACIZUMAB. [Suspect]
     Active Substance: BEVACIZUMAB
     Indication: BREAST CANCER
     Dosage: DAILY DOSE: 1155 MG MILLIGRAM(S) EVERY 3 WEEK
     Dates: start: 20150806, end: 20150806
  5. PACLITAXEL. [Concomitant]
     Active Substance: PACLITAXEL
     Indication: BREAST CANCER
     Dosage: 29/OCT/2015, 26/NOV/2015, 30/DEC/2015, 27/JAN/2016, 10/FEB/2016, 09/MAR/2016, 13/APR/2016, 11/MAY/20
     Route: 042
     Dates: start: 20150924
  6. BEVACIZUMAB. [Suspect]
     Active Substance: BEVACIZUMAB
     Dosage: DAILY DOSE: 1155 MG MILLIGRAM(S) EVERY 3 WEEK
     Route: 042
     Dates: start: 20151230, end: 20151230
  7. BRAUNOVIDON [Concomitant]
     Route: 065
     Dates: start: 20160608, end: 20160829

REACTIONS (2)
  - Blood pressure increased [Recovered/Resolved]
  - Headache [Recovered/Resolved]

NARRATIVE: CASE EVENT DATE: 20160120
